FAERS Safety Report 9880309 (Version 1)
Quarter: 2014Q1

REPORT INFORMATION
  Report Type: Spontaneous
  Country: CZ (occurrence: CZ)
  Receive Date: 20140207
  Receipt Date: 20140207
  Transmission Date: 20141002
  Serious: Yes (Other)
  Sender: FDA-Public Use
  Company Number: CZ-AMGEN-CZESP2014008506

PATIENT
  Sex: 0

DRUGS (1)
  1. ENBREL [Suspect]
     Indication: RHEUMATOID ARTHRITIS
     Dosage: 50 MG, UNK
     Route: 065
     Dates: start: 20090903, end: 20131031

REACTIONS (4)
  - Rheumatoid arthritis [Unknown]
  - Inflammation [Unknown]
  - Disease progression [Unknown]
  - Drug ineffective [Unknown]
